FAERS Safety Report 23532256 (Version 5)
Quarter: 2025Q1

REPORT INFORMATION
  Report Type: Spontaneous
  Country: CA (occurrence: CA)
  Receive Date: 20240216
  Receipt Date: 20250226
  Transmission Date: 20250409
  Serious: Yes (Congenital Anomaly)
  Sender: NOVARTIS
  Company Number: CA-002147023-NVSC2024CA031794

PATIENT
  Sex: Female

DRUGS (138)
  1. COSENTYX [Suspect]
     Active Substance: SECUKINUMAB
     Indication: Exposure during pregnancy
     Route: 064
  2. DICLOFENAC SODIUM [Suspect]
     Active Substance: DICLOFENAC SODIUM
     Indication: Exposure during pregnancy
     Route: 064
  3. DICLOFENAC SODIUM [Suspect]
     Active Substance: DICLOFENAC SODIUM
     Indication: Rheumatoid arthritis
  4. ERELZI [Suspect]
     Active Substance: ETANERCEPT-SZZS
     Indication: Exposure during pregnancy
     Route: 064
  5. ERELZI [Suspect]
     Active Substance: ETANERCEPT-SZZS
     Indication: Product used for unknown indication
  6. RITUXIMAB [Suspect]
     Active Substance: RITUXIMAB
     Indication: Rheumatic fever
     Route: 064
  7. RITUXIMAB [Suspect]
     Active Substance: RITUXIMAB
     Indication: Exposure during pregnancy
     Route: 064
  8. RITUXIMAB [Suspect]
     Active Substance: RITUXIMAB
     Route: 064
  9. RITUXIMAB [Suspect]
     Active Substance: RITUXIMAB
     Route: 064
  10. RITUXIMAB [Suspect]
     Active Substance: RITUXIMAB
     Route: 064
  11. RITUXIMAB [Suspect]
     Active Substance: RITUXIMAB
     Route: 064
  12. RITUXIMAB [Suspect]
     Active Substance: RITUXIMAB
     Route: 064
  13. RITUXIMAB [Suspect]
     Active Substance: RITUXIMAB
     Route: 064
  14. RITUXIMAB [Suspect]
     Active Substance: RITUXIMAB
     Route: 064
  15. LEFLUNOMIDE [Suspect]
     Active Substance: LEFLUNOMIDE
     Indication: Rheumatoid arthritis
     Route: 064
  16. LEFLUNOMIDE [Suspect]
     Active Substance: LEFLUNOMIDE
     Indication: Exposure during pregnancy
     Route: 064
  17. LEFLUNOMIDE [Suspect]
     Active Substance: LEFLUNOMIDE
     Route: 064
  18. ACETAMINOPHEN [Suspect]
     Active Substance: ACETAMINOPHEN
     Indication: Exposure during pregnancy
     Route: 064
  19. ACETAMINOPHEN [Suspect]
     Active Substance: ACETAMINOPHEN
     Indication: Rheumatoid arthritis
     Route: 064
  20. ACETAMINOPHEN [Suspect]
     Active Substance: ACETAMINOPHEN
     Indication: Product used for unknown indication
  21. ACTEMRA [Suspect]
     Active Substance: TOCILIZUMAB
     Indication: Exposure during pregnancy
     Route: 064
  22. ACTEMRA [Suspect]
     Active Substance: TOCILIZUMAB
     Indication: Rheumatoid arthritis
     Dosage: 25 MG, QW
     Route: 064
  23. ACTEMRA [Suspect]
     Active Substance: TOCILIZUMAB
     Indication: Product used for unknown indication
     Route: 064
  24. ACTEMRA [Suspect]
     Active Substance: TOCILIZUMAB
     Route: 064
  25. ACTEMRA [Suspect]
     Active Substance: TOCILIZUMAB
     Route: 064
  26. ACTEMRA [Suspect]
     Active Substance: TOCILIZUMAB
     Route: 064
  27. ACTEMRA [Suspect]
     Active Substance: TOCILIZUMAB
     Route: 064
     Dates: start: 20220613
  28. ACTEMRA [Suspect]
     Active Substance: TOCILIZUMAB
     Route: 064
  29. PREDNISONE [Suspect]
     Active Substance: PREDNISONE
     Indication: Exposure during pregnancy
     Route: 064
  30. PREDNISONE [Suspect]
     Active Substance: PREDNISONE
     Indication: Rheumatoid arthritis
     Route: 064
  31. PREDNISONE [Suspect]
     Active Substance: PREDNISONE
     Route: 064
  32. PREDNISONE [Suspect]
     Active Substance: PREDNISONE
     Route: 064
  33. ARAVA [Suspect]
     Active Substance: LEFLUNOMIDE
     Indication: Exposure during pregnancy
     Route: 064
  34. ARAVA [Suspect]
     Active Substance: LEFLUNOMIDE
     Indication: Rheumatoid arthritis
     Route: 064
  35. ARAVA [Suspect]
     Active Substance: LEFLUNOMIDE
     Indication: Product used for unknown indication
  36. AZATHIOPRINE [Suspect]
     Active Substance: AZATHIOPRINE
     Indication: Exposure during pregnancy
     Route: 064
  37. AZATHIOPRINE [Suspect]
     Active Substance: AZATHIOPRINE
     Indication: Product used for unknown indication
  38. CETIRIZINE HYDROCHLORIDE [Suspect]
     Active Substance: CETIRIZINE HYDROCHLORIDE
     Indication: Exposure during pregnancy
     Route: 064
  39. CETIRIZINE HYDROCHLORIDE [Suspect]
     Active Substance: CETIRIZINE HYDROCHLORIDE
     Indication: Rheumatoid arthritis
     Route: 064
  40. CETIRIZINE HYDROCHLORIDE [Suspect]
     Active Substance: CETIRIZINE HYDROCHLORIDE
     Indication: Product used for unknown indication
  41. CIMZIA [Suspect]
     Active Substance: CERTOLIZUMAB PEGOL
     Indication: Exposure during pregnancy
     Route: 064
  42. CIMZIA [Suspect]
     Active Substance: CERTOLIZUMAB PEGOL
     Indication: Rheumatic fever
     Route: 064
  43. CIMZIA [Suspect]
     Active Substance: CERTOLIZUMAB PEGOL
     Indication: Product used for unknown indication
  44. CORTISONE ACETATE [Suspect]
     Active Substance: CORTISONE ACETATE
     Indication: Exposure during pregnancy
     Route: 064
  45. CORTISONE ACETATE [Suspect]
     Active Substance: CORTISONE ACETATE
     Indication: Product used for unknown indication
  46. DESOXIMETASONE [Suspect]
     Active Substance: DESOXIMETASONE
     Indication: Exposure during pregnancy
     Route: 064
  47. DESOXIMETASONE [Suspect]
     Active Substance: DESOXIMETASONE
     Indication: Rheumatic fever
     Route: 064
  48. DESOXIMETASONE [Suspect]
     Active Substance: DESOXIMETASONE
     Indication: Product used for unknown indication
     Route: 064
  49. ENBREL [Suspect]
     Active Substance: ETANERCEPT
     Indication: Exposure during pregnancy
     Route: 064
  50. ENBREL [Suspect]
     Active Substance: ETANERCEPT
     Indication: Rheumatic fever
     Dosage: 50 MG, QW
     Route: 064
  51. ENBREL [Suspect]
     Active Substance: ETANERCEPT
     Indication: Product used for unknown indication
     Route: 064
  52. ENBREL [Suspect]
     Active Substance: ETANERCEPT
     Dosage: 10 MG, QW
     Route: 064
  53. FLUMETHASONE PIVALATE [Suspect]
     Active Substance: FLUMETHASONE PIVALATE
     Indication: Exposure during pregnancy
     Route: 064
  54. FLUMETHASONE PIVALATE [Suspect]
     Active Substance: FLUMETHASONE PIVALATE
     Indication: Product used for unknown indication
  55. FOLIC ACID [Suspect]
     Active Substance: FOLIC ACID
     Indication: Exposure during pregnancy
     Route: 064
  56. FOLIC ACID [Suspect]
     Active Substance: FOLIC ACID
     Indication: Product used for unknown indication
  57. FOSAMAX [Suspect]
     Active Substance: ALENDRONATE SODIUM
     Indication: Exposure during pregnancy
     Route: 064
  58. FOSAMAX [Suspect]
     Active Substance: ALENDRONATE SODIUM
     Indication: Product used for unknown indication
  59. GOLD [Suspect]
     Active Substance: GOLD
     Indication: Exposure during pregnancy
     Route: 064
  60. GOLD [Suspect]
     Active Substance: GOLD
     Indication: Product used for unknown indication
  61. HUMIRA [Suspect]
     Active Substance: ADALIMUMAB
     Indication: Exposure during pregnancy
     Dosage: 40 MG, QW
     Route: 064
  62. HUMIRA [Suspect]
     Active Substance: ADALIMUMAB
     Indication: Rheumatic fever
     Dosage: 40 MG, QW
     Route: 058
  63. HUMIRA [Suspect]
     Active Substance: ADALIMUMAB
     Indication: Product used for unknown indication
  64. HYDROCORTISONE [Suspect]
     Active Substance: HYDROCORTISONE
     Indication: Exposure during pregnancy
     Route: 064
  65. HYDROXYCHLOROQUINE [Suspect]
     Active Substance: HYDROXYCHLOROQUINE
     Indication: Exposure during pregnancy
     Route: 064
  66. HYDROXYCHLOROQUINE [Suspect]
     Active Substance: HYDROXYCHLOROQUINE
     Indication: Rheumatoid arthritis
     Route: 064
  67. HYDROXYCHLOROQUINE [Suspect]
     Active Substance: HYDROXYCHLOROQUINE
     Route: 064
  68. HYDROXYCHLOROQUINE [Suspect]
     Active Substance: HYDROXYCHLOROQUINE
     Route: 064
  69. HYDROXYCHLOROQUINE [Suspect]
     Active Substance: HYDROXYCHLOROQUINE
     Route: 064
  70. HYDROXYCHLOROQUINE [Suspect]
     Active Substance: HYDROXYCHLOROQUINE
     Route: 064
  71. HYDROXYCHLOROQUINE SULFATE [Suspect]
     Active Substance: HYDROXYCHLOROQUINE SULFATE
     Indication: Exposure during pregnancy
     Route: 064
  72. METHOTREXATE [Suspect]
     Active Substance: METHOTREXATE
     Indication: Exposure during pregnancy
     Dosage: 20 MG, QW (1 EVERY 1 WEEKS)
     Route: 064
  73. METHOTREXATE [Suspect]
     Active Substance: METHOTREXATE
     Indication: Rheumatoid arthritis
     Dosage: 25 MG, QW (1 EVERY 1 WEEKS)
     Route: 064
  74. METHOTREXATE [Suspect]
     Active Substance: METHOTREXATE
     Dosage: 15 MG, QW (1 EVERY 1 WEEKS)
     Route: 064
  75. METHOTREXATE [Suspect]
     Active Substance: METHOTREXATE
     Route: 064
  76. METHOTREXATE [Suspect]
     Active Substance: METHOTREXATE
     Dosage: 25 MG, QW
     Route: 064
  77. METHYLPREDNISOLONE [Suspect]
     Active Substance: METHYLPREDNISOLONE
     Indication: Exposure during pregnancy
     Route: 064
  78. METHYLPREDNISOLONE [Suspect]
     Active Substance: METHYLPREDNISOLONE
     Indication: Product used for unknown indication
  79. MINOCYCLINE [Suspect]
     Active Substance: MINOCYCLINE HYDROCHLORIDE
     Indication: Exposure during pregnancy
     Route: 064
  80. MINOCYCLINE [Suspect]
     Active Substance: MINOCYCLINE HYDROCHLORIDE
     Indication: Rheumatic fever
     Route: 064
  81. MINOCYCLINE [Suspect]
     Active Substance: MINOCYCLINE HYDROCHLORIDE
     Indication: Product used for unknown indication
  82. MYOCHRYSINE [Suspect]
     Active Substance: GOLD SODIUM THIOMALATE
     Indication: Exposure during pregnancy
     Route: 064
  83. MYOCHRYSINE [Suspect]
     Active Substance: GOLD SODIUM THIOMALATE
     Indication: Rheumatoid arthritis
  84. ORENCIA [Suspect]
     Active Substance: ABATACEPT
     Indication: Exposure during pregnancy
     Dosage: 125 MG, QW
     Route: 064
  85. ORENCIA [Suspect]
     Active Substance: ABATACEPT
     Indication: Rheumatic fever
     Route: 064
  86. ORENCIA [Suspect]
     Active Substance: ABATACEPT
     Indication: Product used for unknown indication
     Route: 064
  87. ORENCIA [Suspect]
     Active Substance: ABATACEPT
     Route: 064
  88. ORENCIA [Suspect]
     Active Substance: ABATACEPT
     Route: 064
  89. ORENCIA [Suspect]
     Active Substance: ABATACEPT
     Route: 064
  90. ORENCIA [Suspect]
     Active Substance: ABATACEPT
     Route: 064
  91. OTEZLA [Suspect]
     Active Substance: APREMILAST
     Indication: Exposure during pregnancy
     Route: 064
  92. OTEZLA [Suspect]
     Active Substance: APREMILAST
     Indication: Rheumatoid arthritis
  93. PERIOGARD [Suspect]
     Active Substance: CHLORHEXIDINE GLUCONATE
     Indication: Exposure during pregnancy
     Route: 064
  94. PERIOGARD [Suspect]
     Active Substance: CHLORHEXIDINE GLUCONATE
     Indication: Product used for unknown indication
  95. PHTHALYLSULFATHIAZOLE [Suspect]
     Active Substance: PHTHALYLSULFATHIAZOLE
     Indication: Exposure during pregnancy
     Route: 064
  96. PHTHALYLSULFATHIAZOLE [Suspect]
     Active Substance: PHTHALYLSULFATHIAZOLE
     Indication: Product used for unknown indication
  97. PSEUDOEPHEDRINE [Suspect]
     Active Substance: PSEUDOEPHEDRINE
     Indication: Exposure during pregnancy
     Route: 064
  98. PSEUDOEPHEDRINE [Suspect]
     Active Substance: PSEUDOEPHEDRINE
     Indication: Product used for unknown indication
  99. REMICADE [Suspect]
     Active Substance: INFLIXIMAB
     Indication: Exposure during pregnancy
     Route: 064
  100. REMICADE [Suspect]
     Active Substance: INFLIXIMAB
     Indication: Rheumatoid arthritis
     Route: 064
  101. REMICADE [Suspect]
     Active Substance: INFLIXIMAB
     Route: 064
  102. REMICADE [Suspect]
     Active Substance: INFLIXIMAB
     Route: 064
  103. REMICADE [Suspect]
     Active Substance: INFLIXIMAB
     Route: 064
  104. SULFASALAZINE [Suspect]
     Active Substance: SULFASALAZINE
     Indication: Exposure during pregnancy
     Route: 064
  105. SULFASALAZINE [Suspect]
     Active Substance: SULFASALAZINE
     Indication: Rheumatoid arthritis
  106. SIMPONI [Suspect]
     Active Substance: GOLIMUMAB
     Indication: Exposure during pregnancy
     Route: 064
  107. SIMPONI [Suspect]
     Active Substance: GOLIMUMAB
     Indication: Rheumatic fever
     Route: 064
  108. SIMPONI [Suspect]
     Active Substance: GOLIMUMAB
     Indication: Product used for unknown indication
  109. SIRUKUMAB [Suspect]
     Active Substance: SIRUKUMAB
     Indication: Exposure during pregnancy
     Route: 064
  110. SIRUKUMAB [Suspect]
     Active Substance: SIRUKUMAB
     Indication: Product used for unknown indication
  111. GOLD SODIUM THIOMALATE [Suspect]
     Active Substance: GOLD SODIUM THIOMALATE
     Indication: Exposure during pregnancy
     Route: 064
  112. GOLD SODIUM THIOMALATE [Suspect]
     Active Substance: GOLD SODIUM THIOMALATE
     Indication: Product used for unknown indication
  113. STELARA [Suspect]
     Active Substance: USTEKINUMAB
     Indication: Exposure during pregnancy
     Route: 064
  114. STELARA [Suspect]
     Active Substance: USTEKINUMAB
     Indication: Rheumatoid arthritis
  115. SULFAMETHOXAZOLE AND TRIMETHOPRIM [Suspect]
     Active Substance: SULFAMETHOXAZOLE\TRIMETHOPRIM
     Indication: Exposure during pregnancy
     Route: 064
  116. SULFAMETHOXAZOLE AND TRIMETHOPRIM [Suspect]
     Active Substance: SULFAMETHOXAZOLE\TRIMETHOPRIM
     Indication: Rheumatoid arthritis
  117. SULFASALAZINE [Suspect]
     Active Substance: SULFASALAZINE
     Indication: Exposure during pregnancy
     Route: 065
  118. SULFASALAZINE [Suspect]
     Active Substance: SULFASALAZINE
     Route: 064
  119. TRAMADOL HYDROCHLORIDE [Suspect]
     Active Substance: TRAMADOL HYDROCHLORIDE
     Indication: Exposure during pregnancy
     Route: 064
  120. TRAMADOL HYDROCHLORIDE [Suspect]
     Active Substance: TRAMADOL HYDROCHLORIDE
     Indication: Product used for unknown indication
  121. XELJANZ [Suspect]
     Active Substance: TOFACITINIB CITRATE
     Indication: Exposure during pregnancy
     Route: 064
  122. XELJANZ [Suspect]
     Active Substance: TOFACITINIB CITRATE
     Indication: Rheumatic fever
     Route: 064
  123. XELJANZ [Suspect]
     Active Substance: TOFACITINIB CITRATE
     Indication: Product used for unknown indication
     Route: 064
  124. XELJANZ [Suspect]
     Active Substance: TOFACITINIB CITRATE
     Route: 064
  125. XELJANZ [Suspect]
     Active Substance: TOFACITINIB CITRATE
     Route: 064
  126. ACETAMINOPHEN\CAFFEINE\CARISOPRODOL\DICLOFENAC [Suspect]
     Active Substance: ACETAMINOPHEN\CAFFEINE\CARISOPRODOL\DICLOFENAC
     Indication: Product used for unknown indication
     Route: 064
  127. ACETAMINOPHEN\CAFFEINE\CARISOPRODOL\DICLOFENAC [Suspect]
     Active Substance: ACETAMINOPHEN\CAFFEINE\CARISOPRODOL\DICLOFENAC
     Indication: Exposure during pregnancy
  128. KEVZARA [Suspect]
     Active Substance: SARILUMAB
     Indication: Product used for unknown indication
     Route: 064
  129. KEVZARA [Suspect]
     Active Substance: SARILUMAB
     Indication: Exposure during pregnancy
  130. HYDROCORTISONE [Suspect]
     Active Substance: HYDROCORTISONE
     Indication: Product used for unknown indication
     Route: 064
  131. HYDROCORTISONE [Suspect]
     Active Substance: HYDROCORTISONE
     Indication: Exposure during pregnancy
  132. FOSAMAX PLUS D [Suspect]
     Active Substance: ALENDRONATE SODIUM\CHOLECALCIFEROL
     Indication: Product used for unknown indication
     Route: 064
  133. FOSAMAX PLUS D [Suspect]
     Active Substance: ALENDRONATE SODIUM\CHOLECALCIFEROL
     Indication: Exposure during pregnancy
  134. SULFAMETHOXAZOLE [Suspect]
     Active Substance: SULFAMETHOXAZOLE
     Indication: Exposure during pregnancy
     Route: 064
  135. DESOGESTREL [Concomitant]
     Active Substance: DESOGESTREL
     Indication: Exposure during pregnancy
     Route: 064
  136. DESOGESTREL\ETHINYL ESTRADIOL [Concomitant]
     Active Substance: DESOGESTREL\ETHINYL ESTRADIOL
     Indication: Exposure during pregnancy
     Route: 064
  137. NAPROXEN [Concomitant]
     Active Substance: NAPROXEN
     Indication: Exposure during pregnancy
     Route: 064
  138. NAPROXEN [Concomitant]
     Active Substance: NAPROXEN
     Route: 064

REACTIONS (3)
  - Congenital anomaly [Not Recovered/Not Resolved]
  - Foetal exposure during pregnancy [Not Recovered/Not Resolved]
  - Maternal exposure during pregnancy [Not Recovered/Not Resolved]
